FAERS Safety Report 9128494 (Version 1)
Quarter: 2013Q1

REPORT INFORMATION
  Report Type: Report from Study
  Country: LV (occurrence: LV)
  Receive Date: 20130228
  Receipt Date: 20130228
  Transmission Date: 20140127
  Serious: Yes (Other)
  Sender: FDA-Public Use
  Company Number: LV-ROCHE-1159949

PATIENT
  Age: 70 Year
  Sex: Female
  Weight: 80 kg

DRUGS (2)
  1. XELODA [Suspect]
     Indication: COLON CANCER
     Route: 048
     Dates: start: 20121016, end: 20121213
  2. XELODA [Suspect]
     Route: 048
     Dates: start: 20130118

REACTIONS (5)
  - Diarrhoea [Not Recovered/Not Resolved]
  - Palmar-plantar erythrodysaesthesia syndrome [Not Recovered/Not Resolved]
  - Oral pain [Recovered/Resolved]
  - Vaginal disorder [Recovered/Resolved]
  - Pyrexia [Recovered/Resolved]
